FAERS Safety Report 6353397-X (Version None)
Quarter: 2009Q3

REPORT INFORMATION
  Report Type: 
  Country: None (occurrence: None)
  Receive Date: 20090912
  Receipt Date: 20090622
  Transmission Date: 20100115
  Serious: No
  Sender: FDA-Public Use
  Company Number: US-ABBOTT-08P-163-0472364-00

PATIENT
  Sex: Female

DRUGS (10)
  1. HUMIRA [Suspect]
     Indication: PSORIASIS
     Route: 050
     Dates: start: 20080731
  2. HUMIRA [Suspect]
     Indication: PSORIATIC ARTHROPATHY
     Route: 050
     Dates: start: 20080807
  3. HUMIRA [Suspect]
     Route: 050
  4. IBUPROFEN [Concomitant]
     Indication: PAIN
     Route: 048
  5. ACETAMINOPHEN [Concomitant]
     Indication: PAIN
     Route: 048
  6. TRAMADOL HCL [Concomitant]
     Indication: PAIN
     Route: 048
  7. KETOROLAC TROMETHAMINE [Concomitant]
     Indication: PAIN
     Dosage: ONLY WHILE TRAVELING, AS REQUIRED
     Route: 048
  8. OXYCODONE HCL [Concomitant]
     Indication: PAIN
     Dosage: RARELY
     Route: 048
  9. ENALAPRIL MALEATE [Concomitant]
     Indication: BLOOD PRESSURE
     Route: 048
  10. HYDROCHLOROTHIAZIDE [Concomitant]
     Indication: DRUG USE FOR UNKNOWN INDICATION
     Route: 048

REACTIONS (4)
  - INCORRECT DOSE ADMINISTERED [None]
  - RASH [None]
  - SCHAMBERG'S DISEASE [None]
  - WRONG TECHNIQUE IN DRUG USAGE PROCESS [None]
